FAERS Safety Report 14185460 (Version 2)
Quarter: 2019Q1

REPORT INFORMATION
  Report Type: Report from Study
  Country: DE (occurrence: DE)
  Receive Date: 20171114
  Receipt Date: 20190130
  Transmission Date: 20190417
  Serious: Yes (Hospitalization, Other)
  Sender: FDA-Public Use
  Company Number: DE-INCYTE CORPORATION-2017IN003486

PATIENT

DRUGS (24)
  1. ATACAND PROTECT [Concomitant]
     Active Substance: CANDESARTAN CILEXETIL
     Indication: HYPERTENSION
     Dosage: 16 MG, QD
     Route: 065
  2. GABAPENTIN ARISTO [Concomitant]
     Indication: POLYNEUROPATHY
     Dosage: 200 MG, QD
     Route: 065
  3. LEVOTHYROXINE. [Concomitant]
     Active Substance: LEVOTHYROXINE
     Indication: HYPERTHYROIDISM
     Dosage: 75 MG, QD
     Route: 065
  4. CANDESARTAN. [Concomitant]
     Active Substance: CANDESARTAN
     Indication: HYPERTENSION
     Dosage: 32 MG, QD
     Route: 065
     Dates: start: 20131118
  5. AMLODIPINE [Concomitant]
     Active Substance: AMLODIPINE BESYLATE
     Indication: HYPERTENSION
     Dosage: 5 MG, QD
     Route: 065
     Dates: start: 20011001
  6. ASPIRIN. [Concomitant]
     Active Substance: ASPIRIN
     Indication: ANGIOPATHY
     Dosage: 100 MG, QD
     Route: 065
  7. AZITHROMYCIN ANHYDROUS. [Concomitant]
     Active Substance: AZITHROMYCIN ANHYDROUS
     Indication: NASOPHARYNGITIS
     Dosage: 500 MG, QD
     Route: 065
     Dates: start: 20150310, end: 20150312
  8. INCB018424 [Suspect]
     Active Substance: RUXOLITINIB
     Dosage: 20 MG, QD
     Route: 048
     Dates: start: 20170610, end: 20180318
  9. PALEXIA [Concomitant]
     Active Substance: TAPENTADOL HYDROCHLORIDE
     Indication: PAIN
     Dosage: 50 TO 100 MG, QD
     Route: 065
     Dates: start: 20151104
  10. AZITHROMYCIN ANHYDROUS. [Concomitant]
     Active Substance: AZITHROMYCIN ANHYDROUS
     Indication: INFECTION
     Dosage: 500 MG, QD
     Route: 065
     Dates: start: 20150921, end: 20150923
  11. CEFUROXIME. [Concomitant]
     Active Substance: CEFUROXIME
     Indication: FEBRILE INFECTION
     Dosage: 1000 MG, UNK
     Route: 065
     Dates: start: 20181119, end: 20181123
  12. XANAFLU [Concomitant]
     Active Substance: INFLUENZA VIRUS VACCINE
     Indication: INFLUENZA
     Dosage: UNK
     Route: 065
     Dates: start: 20151112, end: 20151112
  13. PREVNAR 13 [Concomitant]
     Active Substance: PNEUMOCOCCAL 13-VALENT CONJUGATE VACCINE
     Indication: PRODUCT USED FOR UNKNOWN INDICATION
     Dosage: UNK
     Route: 065
     Dates: start: 20160115, end: 20160115
  14. INCB018424 [Suspect]
     Active Substance: RUXOLITINIB
     Dosage: 5 MG, BID (10 MG/DAY/TWICE)
     Route: 048
     Dates: start: 20170206, end: 20170609
  15. INCB018424 [Suspect]
     Active Substance: RUXOLITINIB
     Dosage: 30 MG, QD
     Route: 048
     Dates: start: 20180319
  16. BISOPROLOL [Concomitant]
     Active Substance: BISOPROLOL
     Indication: HYPERTENSION
     Dosage: 0.25 MG, QD
     Route: 065
  17. PENTOXIFYLLIN [Concomitant]
     Active Substance: PENTOXIFYLLINE
     Indication: ANGIOPATHY
     Dosage: 600 MG, QD
     Route: 065
  18. NOVAMINSULFON [Concomitant]
     Active Substance: METAMIZOLE
     Indication: POLYNEUROPATHY
     Dosage: 500 MG, QD
     Route: 065
     Dates: start: 20150513
  19. INCB018424 [Suspect]
     Active Substance: RUXOLITINIB
     Dosage: 5 MG, BID (10 MG/DAY/TWICE)
     Route: 048
     Dates: start: 20150921
  20. CIPROFLOXACIN. [Concomitant]
     Active Substance: CIPROFLOXACIN
     Indication: URINARY TRACT INFECTION
     Dosage: 1000 MG, UNK
     Route: 065
     Dates: start: 20181212, end: 20181216
  21. INCB018424 [Suspect]
     Active Substance: RUXOLITINIB
     Indication: PRIMARY MYELOFIBROSIS
     Dosage: UNK
     Route: 048
     Dates: start: 20131209
  22. INCB018424 [Suspect]
     Active Substance: RUXOLITINIB
     Dosage: 5 MG ,QD
     Route: 048
     Dates: start: 20170110, end: 20170125
  23. HCT CT [Concomitant]
     Indication: HYPERTENSION
     Dosage: 12 MG, QD
     Route: 065
  24. DIAZEPAM. [Concomitant]
     Active Substance: DIAZEPAM
     Indication: SLEEP DISORDER
     Dosage: 10 MG, QD
     Route: 065
     Dates: start: 20160720

REACTIONS (7)
  - Anaemia [Unknown]
  - Uterovaginal prolapse [Recovered/Resolved]
  - Cystitis [Unknown]
  - Myelofibrosis [Not Recovered/Not Resolved]
  - Chronic myeloid leukaemia [Not Recovered/Not Resolved]
  - Leukocytosis [Unknown]
  - Blast cells present [Unknown]

NARRATIVE: CASE EVENT DATE: 20170103
